FAERS Safety Report 7544385-6 (Version None)
Quarter: 2011Q2

REPORT INFORMATION
  Report Type: 
  Country: None (occurrence: None)
  Receive Date: 20110613
  Receipt Date: 20080404
  Transmission Date: 20111010
  Serious: Yes (Other)
  Sender: FDA-Public Use
  Company Number: PHHY2008NZ04956

PATIENT
  Sex: Male

DRUGS (1)
  1. CLOZAPINE [Suspect]
     Indication: SCHIZOPHRENIA
     Dates: start: 20021216

REACTIONS (6)
  - HIGH DENSITY LIPOPROTEIN DECREASED [None]
  - BLOOD UREA DECREASED [None]
  - MEAN CELL VOLUME DECREASED [None]
  - BLOOD POTASSIUM DECREASED [None]
  - HEPATITIS B VIRUS TEST POSITIVE [None]
  - MEAN CELL HAEMOGLOBIN DECREASED [None]
